FAERS Safety Report 19289242 (Version 1)
Quarter: 2021Q2

REPORT INFORMATION
  Report Type: Spontaneous
  Country: IR (occurrence: IR)
  Receive Date: 20210521
  Receipt Date: 20210521
  Transmission Date: 20210717
  Serious: Yes (Other)
  Sender: FDA-Public Use
  Company Number: IR-SA-2021SA169298

PATIENT
  Sex: Male

DRUGS (1)
  1. OMNIC [Suspect]
     Active Substance: TAMSULOSIN HYDROCHLORIDE
     Indication: PRODUCT USED FOR UNKNOWN INDICATION
     Dosage: 0.4 MG, UNKNOWN FREQ.

REACTIONS (10)
  - Abdominal distension [Unknown]
  - Pollakiuria [Unknown]
  - Hypersensitivity [Unknown]
  - Gastrooesophageal reflux disease [Unknown]
  - Rhinorrhoea [Unknown]
  - Nasal congestion [Unknown]
  - Asthenia [Unknown]
  - Lethargy [Unknown]
  - Dry mouth [Unknown]
  - Increased upper airway secretion [Unknown]
